FAERS Safety Report 15843339 (Version 4)
Quarter: 2020Q1

REPORT INFORMATION
  Report Type: Report from Study
  Country: None (occurrence: BR)
  Receive Date: 20190118
  Receipt Date: 20200316
  Transmission Date: 20200409
  Serious: Yes (Hospitalization, Other)
  Sender: FDA-Public Use
  Company Number: BR-ABBVIE-19K-020-2629908-00

PATIENT
  Age: 43 Year
  Sex: Male
  Weight: 53 kg

DRUGS (2)
  1. MESALAZINE [Concomitant]
     Active Substance: MESALAMINE
     Indication: CROHN^S DISEASE
  2. HUMIRA [Suspect]
     Active Substance: ADALIMUMAB
     Indication: CROHN^S DISEASE
     Route: 058
     Dates: start: 20180702

REACTIONS (7)
  - Intestinal stenosis [Unknown]
  - Gastrointestinal inflammation [Unknown]
  - Constipation [Unknown]
  - Cholelithiasis [Recovering/Resolving]
  - Gastrointestinal inflammation [Recovered/Resolved]
  - Malaise [Unknown]
  - Diarrhoea [Unknown]

NARRATIVE: CASE EVENT DATE: 201901
